FAERS Safety Report 24627013 (Version 1)
Quarter: 2024Q4

REPORT INFORMATION
  Report Type: Spontaneous
  Country: US (occurrence: US)
  Receive Date: 20241115
  Receipt Date: 20241115
  Transmission Date: 20250115
  Serious: No
  Sender: AMGEN
  Company Number: US-AMGEN-USASL2024225390

PATIENT
  Sex: Male

DRUGS (2)
  1. PROCYSBI [Suspect]
     Active Substance: CYSTEAMINE BITARTRATE
     Indication: Cystinosis
     Dosage: 450 MILLIGRAM, BID (TAKE ONE 300 MG PACKET AND TWO 75 MG PACKETS BY MOUTH EVERY TO EQUAL 450 MG)
     Route: 048
  2. PROCYSBI [Suspect]
     Active Substance: CYSTEAMINE BITARTRATE
     Dosage: UNK
     Route: 048

REACTIONS (2)
  - Illness [Unknown]
  - Malaise [Unknown]
